FAERS Safety Report 6196872-3 (Version None)
Quarter: 2009Q2

REPORT INFORMATION
  Report Type: 
  Country: None (occurrence: None)
  Receive Date: 20090518
  Receipt Date: 20090518
  Transmission Date: 20091009
  Serious: Yes (Hospitalization)
  Sender: FDA-Public Use
  Company Number: None

PATIENT
  Age: 68 Year
  Sex: Female

DRUGS (8)
  1. WARFARIN SODIUM [Suspect]
     Indication: ATRIAL FIBRILLATION
     Dosage: 4 MG ONCE A DAY
  2. METFORMIN HCL [Concomitant]
  3. LEVOTHYROXINE [Concomitant]
  4. TOLTERODINE TARTRATE [Concomitant]
  5. ATORVASTATIN CALCIUM [Concomitant]
  6. HYDROCHLOTHIAZIDE [Concomitant]
  7. LOSARTAN POTASSIUM [Concomitant]
  8. AMIODARONE HCL [Concomitant]

REACTIONS (2)
  - BLOOD URINE PRESENT [None]
  - INTERNATIONAL NORMALISED RATIO INCREASED [None]
